FAERS Safety Report 20741532 (Version 2)
Quarter: 2022Q2

REPORT INFORMATION
  Report Type: Spontaneous
  Country: US (occurrence: US)
  Receive Date: 20220422
  Receipt Date: 20220524
  Transmission Date: 20220721
  Serious: Yes (Other)
  Sender: FDA-Public Use
  Company Number: US-PFIZER INC-202200574726

PATIENT
  Age: 87 Year
  Sex: Female

DRUGS (1)
  1. IBRANCE [Suspect]
     Active Substance: PALBOCICLIB
     Dosage: 125 MG, 1 CAPSULE ONCE DAILY ON DAYS 1 THROUGH 21
     Dates: start: 20220215

REACTIONS (18)
  - Dementia [Unknown]
  - White blood cell count decreased [Not Recovered/Not Resolved]
  - Granulocyte count decreased [Not Recovered/Not Resolved]
  - Back pain [Unknown]
  - Cancer pain [Unknown]
  - Platelet count decreased [Unknown]
  - Haemoglobin decreased [Unknown]
  - Infection [Unknown]
  - Neoplasm progression [Unknown]
  - Fatigue [Unknown]
  - Off label use [Unknown]
  - Bacterial infection [Not Recovered/Not Resolved]
  - Somnolence [Unknown]
  - Upper respiratory tract infection [Not Recovered/Not Resolved]
  - Rhinorrhoea [Not Recovered/Not Resolved]
  - Cough [Not Recovered/Not Resolved]
  - Pyrexia [Unknown]
  - Asthenia [Not Recovered/Not Resolved]

NARRATIVE: CASE EVENT DATE: 20220101
